FAERS Safety Report 5140455-0 (Version None)
Quarter: 2006Q4

REPORT INFORMATION
  Report Type: 
  Country: None (occurrence: None)
  Receive Date: 20061024
  Receipt Date: 20061010
  Transmission Date: 20070319
  Serious: Yes (Death)
  Sender: FDA-Public Use
  Company Number: IN200610002027

PATIENT
  Age: 92 Year
  Sex: Female

DRUGS (2)
  1. FORTEO [Suspect]
     Dosage: 20 MCG, DAILY (1/D), SUBCUTANEOUS
     Route: 058
     Dates: start: 20060804, end: 20061010
  2. FORTEO [Concomitant]

REACTIONS (1)
  - MULTI-ORGAN FAILURE [None]
